FAERS Safety Report 4984874-1 (Version None)
Quarter: 2006Q2

REPORT INFORMATION
  Report Type: 
  Country: None (occurrence: None)
  Receive Date: 20060427
  Receipt Date: 20060321
  Transmission Date: 20061013
  Serious: Yes (Disabling)
  Sender: FDA-Public Use
  Company Number: GB-ROCHE-441648

PATIENT
  Age: 44 Year
  Sex: Female
  Weight: 110 kg

DRUGS (2)
  1. ROACCUTANE [Suspect]
     Indication: HIDRADENITIS
     Route: 048
     Dates: start: 20051122
  2. ROACCUTANE [Suspect]
     Route: 048
     Dates: start: 20060124, end: 20060301

REACTIONS (1)
  - CEREBRAL INFARCTION [None]
